FAERS Safety Report 24837143 (Version 1)
Quarter: 2025Q1

REPORT INFORMATION
  Report Type: Spontaneous
  Country: US (occurrence: US)
  Receive Date: 20250113
  Receipt Date: 20250113
  Transmission Date: 20250409
  Serious: Yes (Death, Hospitalization, Other)
  Sender: ADVANZ PHARMA
  Company Number: US-ADVANZ PHARMA-202412010936

PATIENT

DRUGS (1)
  1. DIGOXIN [Suspect]
     Active Substance: DIGOXIN
     Route: 051

REACTIONS (1)
  - Medication error [Fatal]
